FAERS Safety Report 9870752 (Version 1)
Quarter: 2014Q1

REPORT INFORMATION
  Report Type: Spontaneous
  Country: US (occurrence: US)
  Receive Date: 20140205
  Receipt Date: 20140205
  Transmission Date: 20141002
  Serious: No
  Sender: FDA-Public Use
  Company Number: US-PFIZER INC-2014031025

PATIENT
  Age: 71 Year
  Sex: Male
  Weight: 47.62 kg

DRUGS (5)
  1. GABAPENTIN [Suspect]
     Indication: PARKINSON^S DISEASE
     Dosage: 300 MG, UNK
     Route: 048
  2. GABAPENTIN [Suspect]
     Dosage: 600 MG, UNK
     Route: 048
  3. GABAPENTIN [Suspect]
     Dosage: 900 MG, UNK
     Route: 048
  4. GABAPENTIN [Suspect]
     Dosage: UNK
     Route: 048
  5. SINEMET [Concomitant]
     Indication: PARKINSON^S DISEASE
     Dosage: 2 DF, 5X/DAY
     Route: 048

REACTIONS (5)
  - Drug ineffective for unapproved indication [Unknown]
  - Pain in extremity [Unknown]
  - Local swelling [Unknown]
  - Burning sensation [Unknown]
  - Gait disturbance [Unknown]
